FAERS Safety Report 11910307 (Version 1)
Quarter: 2016Q1

REPORT INFORMATION
  Report Type: Spontaneous
  Country: GB (occurrence: GB)
  Receive Date: 20160112
  Receipt Date: 20160112
  Transmission Date: 20160526
  Serious: Yes (Hospitalization)
  Sender: FDA-Public Use
  Company Number: GB-AMGEN-GBRSP2016002187

PATIENT
  Age: 55 Year
  Sex: Female

DRUGS (1)
  1. ENBREL [Suspect]
     Active Substance: ETANERCEPT
     Indication: RHEUMATOID ARTHRITIS
     Dosage: 50 MG, WEEKLY
     Route: 065
     Dates: start: 20151229

REACTIONS (13)
  - Speech disorder [Recovered/Resolved]
  - Tachycardia [Unknown]
  - Chest pain [Unknown]
  - Dyspnoea [Unknown]
  - Anxiety [Unknown]
  - Dizziness [Unknown]
  - Malaise [Unknown]
  - Headache [Unknown]
  - Cold sweat [Unknown]
  - Pain [Unknown]
  - Rash [Recovered/Resolved]
  - Nausea [Unknown]
  - Stress [Unknown]

NARRATIVE: CASE EVENT DATE: 20151229
